FAERS Safety Report 24008764 (Version 1)
Quarter: 2024Q2

REPORT INFORMATION
  Report Type: Spontaneous
  Country: ZA (occurrence: DE)
  Receive Date: 20240625
  Receipt Date: 20240625
  Transmission Date: 20240716
  Serious: Yes (Hospitalization)
  Sender: FDA-Public Use
  Company Number: ZA-ABBOTT-2024A-1383085

PATIENT
  Age: 31 Year
  Sex: Male

DRUGS (20)
  1. CREON [Suspect]
     Active Substance: PANCRELIPASE AMYLASE\PANCRELIPASE LIPASE\PANCRELIPASE PROTEASE
     Indication: Cystic fibrosis
     Dosage: 300 MG AS DIRECTED?CREON 25000
     Route: 048
  2. ACETAMINOPHEN\IBUPROFEN [Suspect]
     Active Substance: ACETAMINOPHEN\IBUPROFEN
     Indication: Product used for unknown indication
     Dosage: 400 MG AS PER PACKAGE INSERT?EXTRA STRENGTH
     Route: 065
  3. ALLOPURINOL [Concomitant]
     Active Substance: ALLOPURINOL
     Indication: Gout
     Dosage: 100 MG DIRECTIONS TAKE ONE TABLET ONCE PER DAY
  4. ESOMEPRAZOLE [Concomitant]
     Active Substance: ESOMEPRAZOLE
     Indication: Gastrooesophageal reflux disease
     Dosage: 40 MG DIRECTIONS TAKE ONE TABLET ONCE PER DAY 30-MIN PRIOR TO MEALS
  5. NOVORAPID [Concomitant]
     Active Substance: INSULIN ASPART
     Indication: Type 1 diabetes mellitus
     Dosage: 100 IU INJ 2-IU PER MEALS
  6. K fenak [Concomitant]
     Indication: Product used for unknown indication
     Dosage: 50 MG AS PER PACKAGE INSERT?OTC
  7. LEVALBUTEROL HYDROCHLORIDE [Concomitant]
     Active Substance: LEVALBUTEROL HYDROCHLORIDE
     Indication: Bronchospasm
     Dosage: USE 1-NEB TWICE A DAY TO NEBULIZE WITH 5% SALINE
  8. LANTUS SOLOSTAR [Concomitant]
     Active Substance: INSULIN GLARGINE
     Indication: Type 1 diabetes mellitus
     Dosage: 100 IU INJ 16-IU ONCE PER DAY?PEN
  9. TAMIFLU [Concomitant]
     Active Substance: OSELTAMIVIR PHOSPHATE
     Indication: Product used for unknown indication
     Dosage: 75 MG TAKE ONE CAPSULE TWICE A DAY
  10. ACETYLCYSTEINE [Concomitant]
     Active Substance: ACETYLCYSTEINE
     Indication: Product used for unknown indication
     Dosage: 200 MG DIRECTIONS TAKE ONE TABLET THREE TIMES A DAY
  11. SYNALEVE [Concomitant]
     Indication: Pain
     Dosage: TAKE TWO CAPSULES THREE TIMES A DAY AFTER MEAL
  12. MELATONIN [Concomitant]
     Active Substance: MELATONIN
     Indication: Insomnia
     Dosage: 2 MG TAKE 1-2 TABLETS AT NIGHT
  13. Ferrimed [Concomitant]
     Indication: Product used for unknown indication
     Dosage: 50 MG DIRECTIONS TAKE ONE CAPSULE WEEKLY
  14. COLCIN [Concomitant]
     Indication: Product used for unknown indication
     Dosage: 0.5 MG AS DIRECTED
  15. ZOLPIDEM TARTRATE [Concomitant]
     Active Substance: ZOLPIDEM TARTRATE
     Indication: Insomnia
     Dosage: 12.5 MG DIRECTIONS TAKE ONE TABLET ORALLY?MR
     Route: 048
  16. VERMOX [Concomitant]
     Active Substance: MEBENDAZOLE
     Indication: Product used for unknown indication
     Dosage: 500 MG AS PER PACKAGE INSERT
  17. ERGOCALCIFEROL [Concomitant]
     Active Substance: ERGOCALCIFEROL
     Indication: Product used for unknown indication
     Dosage: 50000 IU TAKE ONE TABLET WEEKLY
  18. LOTEMAX [Concomitant]
     Active Substance: LOTEPREDNOL ETABONATE
     Indication: Product used for unknown indication
     Dosage: 5 MG DIRECTIONS INSTIL ONE DROP TWICE A DAY IN EYE/S
  19. ZITHROLIDE [Concomitant]
     Indication: Product used for unknown indication
     Dosage: 500 MG DIRECTIONS TAKE ONE TABLET THREE TIME A WEEK
  20. SODIUM CHLORIDE [Concomitant]
     Active Substance: SODIUM CHLORIDE
     Indication: Product used for unknown indication
     Dosage: USE DAILY

REACTIONS (1)
  - Pneumonia [Unknown]
